FAERS Safety Report 9954788 (Version 2)
Quarter: 2014Q1

REPORT INFORMATION
  Report Type: Report from Study
  Country: US (occurrence: US)
  Receive Date: 20140304
  Receipt Date: 20140304
  Transmission Date: 20141002
  Serious: Yes (Hospitalization)
  Sender: FDA-Public Use
  Company Number: US-ABBVIE-13P-163-1058524-00

PATIENT
  Age: 51 Year
  Sex: Female

DRUGS (24)
  1. HUMIRA [Suspect]
     Indication: COLITIS ULCERATIVE
     Dates: start: 20121123
  2. HUMIRA [Suspect]
     Dates: start: 2013, end: 2013
  3. HUMIRA [Suspect]
     Dates: start: 2013, end: 2013
  4. HUMIRA [Suspect]
     Dates: start: 2013
  5. LIALDA [Concomitant]
     Indication: COLITIS ULCERATIVE
     Dosage: 1.2 G, 4 TABS IN AM
     Route: 048
  6. LEVOTHYROXINE [Concomitant]
     Indication: HYPOTHYROIDISM
  7. GABAPENTIN [Concomitant]
     Indication: NERVE INJURY
     Dosage: 400 MG DAILY
     Route: 048
  8. GABAPENTIN [Concomitant]
     Indication: NEUROPATHY PERIPHERAL
  9. GABAPENTIN [Concomitant]
     Indication: CERVICAL RADICULOPATHY
  10. GABAPENTIN [Concomitant]
     Indication: LUMBAR RADICULOPATHY
  11. PERCOCET [Concomitant]
     Indication: BREAKTHROUGH PAIN
     Dosage: 5/325 MG, UP TO 4 TABS DAILY
  12. LOMOTIL [Concomitant]
     Indication: DIARRHOEA
     Dosage: AS NEEDED
     Route: 048
  13. OXYCONTIN [Concomitant]
     Indication: PAIN
     Route: 048
  14. AMITRIPTYLINE [Concomitant]
     Indication: PAIN
     Dosage: AT BEDTIME
     Route: 048
  15. AMITRIPTYLINE [Concomitant]
     Indication: INSOMNIA
  16. ANASTROZOLE [Concomitant]
     Indication: HORMONE SUPPRESSION THERAPY
     Dosage: 1 MG DAILY
     Route: 048
  17. ZOLOFT [Concomitant]
     Indication: DEPRESSION
     Route: 048
  18. ZOLOFT [Concomitant]
     Route: 048
  19. XANAX [Concomitant]
     Indication: PANIC ATTACK
     Route: 048
  20. XANAX [Concomitant]
     Indication: ANXIETY
  21. FAMOTIDINE [Concomitant]
     Indication: NAUSEA
     Route: 048
  22. IMITREX [Concomitant]
     Indication: MIGRAINE
     Route: 048
  23. ZOFRAN [Concomitant]
     Indication: NAUSEA
     Dosage: AS NEEDED
     Route: 048
  24. HYDROXYZINE [Concomitant]
     Indication: HYPERSENSITIVITY
     Dosage: EVERY 4-6 HOURS, AS NEEDED
     Route: 048

REACTIONS (9)
  - Incision site cellulitis [Recovered/Resolved]
  - Pericarditis [Recovered/Resolved]
  - Pyrexia [Recovering/Resolving]
  - Vomiting [Not Recovered/Not Resolved]
  - Diarrhoea [Not Recovered/Not Resolved]
  - Cystitis [Recovering/Resolving]
  - Herpes zoster [Recovered/Resolved]
  - Nasopharyngitis [Not Recovered/Not Resolved]
  - Headache [Not Recovered/Not Resolved]
